FAERS Safety Report 14401448 (Version 2)
Quarter: 2018Q1

REPORT INFORMATION
  Report Type: Spontaneous
  Country: US (occurrence: US)
  Receive Date: 20180117
  Receipt Date: 20180212
  Transmission Date: 20180509
  Serious: No
  Sender: FDA-Public Use
  Company Number: US-PFIZER INC-2018018119

PATIENT
  Sex: Female

DRUGS (1)
  1. LYRICA [Suspect]
     Active Substance: PREGABALIN
     Dosage: 2 DF, UNK

REACTIONS (3)
  - Dysphagia [Recovered/Resolved]
  - Drug hypersensitivity [Recovered/Resolved]
  - Pharyngeal oedema [Recovered/Resolved]
